FAERS Safety Report 12851140 (Version 2)
Quarter: 2016Q4

REPORT INFORMATION
  Report Type: Spontaneous
  Country: US (occurrence: US)
  Receive Date: 20161017
  Receipt Date: 20161121
  Transmission Date: 20170207
  Serious: No
  Sender: FDA-Public Use
  Company Number: US-JNJFOC-20161004344

PATIENT
  Sex: Male
  Weight: 61 kg

DRUGS (2)
  1. IMBRUVICA [Suspect]
     Active Substance: IBRUTINIB
     Indication: NON-HODGKIN^S LYMPHOMA
     Route: 048
     Dates: start: 20140918, end: 20160815
  2. TAMSULOSIN [Concomitant]
     Active Substance: TAMSULOSIN

REACTIONS (4)
  - Feeding disorder [Not Recovered/Not Resolved]
  - Creatinine renal clearance decreased [Not Recovered/Not Resolved]
  - Fatigue [Not Recovered/Not Resolved]
  - Pain [Not Recovered/Not Resolved]
